FAERS Safety Report 4534421-3 (Version None)
Quarter: 2004Q4

REPORT INFORMATION
  Report Type: 
  Country: None (occurrence: None)
  Receive Date: 20041214
  Receipt Date: 20040827
  Transmission Date: 20050328
  Serious: Yes (Hospitalization)
  Sender: FDA-Public Use
  Company Number: 2004230612US

PATIENT
  Age: 65 Year

DRUGS (1)
  1. BEXTRA [Suspect]

REACTIONS (1)
  - WEIGHT INCREASED [None]
